FAERS Safety Report 15885087 (Version 1)
Quarter: 2019Q1

REPORT INFORMATION
  Report Type: Spontaneous
  Country: GB (occurrence: GB)
  Receive Date: 20190129
  Receipt Date: 20190129
  Transmission Date: 20190417
  Serious: Yes (Life-Threatening, Other)
  Sender: FDA-Public Use
  Company Number: GB-SA-2019SA000217

PATIENT
  Age: 75 Year
  Sex: Female

DRUGS (1)
  1. SELSUN [Suspect]
     Active Substance: SELENIUM SULFIDE
     Dosage: UNK
     Route: 065

REACTIONS (6)
  - Immune system disorder [Unknown]
  - Chest pain [Unknown]
  - Blindness [Unknown]
  - Hypersensitivity [Unknown]
  - Eye pain [Unknown]
  - Bronchitis [Unknown]
